FAERS Safety Report 12565640 (Version 4)
Quarter: 2016Q3

REPORT INFORMATION
  Report Type: Spontaneous
  Country: FR (occurrence: FR)
  Receive Date: 20160718
  Receipt Date: 20160916
  Transmission Date: 20161109
  Serious: Yes (Hospitalization, Other)
  Sender: FDA-Public Use
  Company Number: FR-NOVOPROD-500331

PATIENT
  Age: 58 Year
  Sex: Female
  Weight: 85 kg

DRUGS (9)
  1. PREGABALIN. [Concomitant]
     Active Substance: PREGABALIN
     Dosage: 1 DF, BID
     Route: 048
  2. ZOPICLONE [Concomitant]
     Active Substance: ZOPICLONE
     Dosage: 1 DF, QD
     Route: 048
  3. LOXEN                              /00639802/ [Concomitant]
     Active Substance: NICARDIPINE
     Dosage: 1 DF, BID
     Route: 048
  4. CITALOPRAM [Concomitant]
     Active Substance: CITALOPRAM HYDROBROMIDE
     Dosage: 1 DF, QD
     Route: 048
  5. VICTOZA [Suspect]
     Active Substance: LIRAGLUTIDE
     Indication: TYPE 2 DIABETES MELLITUS
     Dosage: 1.2 MG, QD
     Route: 058
     Dates: start: 20160520, end: 2016
  6. SERETIDE [Concomitant]
     Active Substance: FLUTICASONE PROPIONATE\SALMETEROL XINAFOATE
     Dosage: 1 PUFF THREE TIMES DAILY
     Route: 055
  7. CETRIZINE [Concomitant]
     Active Substance: CETIRIZINE HYDROCHLORIDE
     Dosage: 1 DF, QD
     Route: 048
  8. MOVICOL [Concomitant]
     Active Substance: POLYETHYLENE GLYCOL 3350\POTASSIUM CHLORIDE\SODIUM BICARBONATE\SODIUM CHLORIDE
     Dosage: 4 DF, QD
     Route: 048
  9. ATORVASTATINE                      /01326101/ [Concomitant]
     Active Substance: ATORVASTATIN
     Dosage: 1 DF, QD
     Route: 048

REACTIONS (1)
  - Intestinal obstruction [Unknown]
